FAERS Safety Report 11534451 (Version 1)
Quarter: 2015Q3

REPORT INFORMATION
  Report Type: Spontaneous
  Country: US (occurrence: None)
  Receive Date: 20150918
  Receipt Date: 20150918
  Transmission Date: 20151125
  Serious: No
  Sender: FDA-Public Use
  Company Number: None

PATIENT
  Age: 66 Year
  Sex: Male
  Weight: 85 kg

DRUGS (1)
  1. SILDENAFIL. [Suspect]
     Active Substance: SILDENAFIL
     Route: 048
     Dates: start: 20150526, end: 20150721

REACTIONS (3)
  - Loss of consciousness [None]
  - Syncope [None]
  - Seizure [None]

NARRATIVE: CASE EVENT DATE: 20150721
